FAERS Safety Report 15411565 (Version 2)
Quarter: 2018Q4

REPORT INFORMATION
  Report Type: Report from Study
  Country: None (occurrence: US)
  Receive Date: 20180921
  Receipt Date: 20181025
  Transmission Date: 20190204
  Serious: Yes (Other)
  Sender: FDA-Public Use
  Company Number: US-ABBVIE-18K-163-2450293-00

PATIENT
  Sex: Female

DRUGS (5)
  1. DUREZOL [Suspect]
     Active Substance: DIFLUPREDNATE
     Indication: PRODUCT USED FOR UNKNOWN INDICATION
     Route: 065
  2. PREDNISONE. [Suspect]
     Active Substance: PREDNISONE
     Indication: PRODUCT USED FOR UNKNOWN INDICATION
     Route: 065
  3. HUMIRA [Suspect]
     Active Substance: ADALIMUMAB
     Indication: UVEITIS
     Route: 058
  4. DUREZOL [Suspect]
     Active Substance: DIFLUPREDNATE
     Route: 065
  5. HUMIRA [Suspect]
     Active Substance: ADALIMUMAB
     Indication: RHEUMATOID ARTHRITIS
     Route: 058

REACTIONS (13)
  - Macular hole [Unknown]
  - Uveitis [Not Recovered/Not Resolved]
  - Ocular discomfort [Unknown]
  - Psoriasis [Not Recovered/Not Resolved]
  - Optic atrophy [Unknown]
  - Iritis [Recovered/Resolved with Sequelae]
  - Eye operation [Unknown]
  - Weight increased [Unknown]
  - Skin wrinkling [Unknown]
  - Inflammation [Not Recovered/Not Resolved]
  - Productive cough [Unknown]
  - Visual impairment [Unknown]
  - Nasopharyngitis [Recovered/Resolved with Sequelae]

NARRATIVE: CASE EVENT DATE: 201404
